FAERS Safety Report 4314450-5 (Version None)
Quarter: 2004Q1

REPORT INFORMATION
  Report Type: 
  Country: None (occurrence: None)
  Receive Date: 20040308
  Receipt Date: 20040227
  Transmission Date: 20041129
  Serious: Yes (Other)
  Sender: FDA-Public Use
  Company Number: 2004-02-1933

PATIENT
  Age: 43 Year
  Sex: Male

DRUGS (3)
  1. TEMODAL [Suspect]
     Indication: GLIOMA
     Dosage: 400 MG QD X5D ORAL
     Route: 048
     Dates: start: 20030224
  2. CORTICOSTEROID NOS [Concomitant]
  3. ANTICONVULSANTS (NOS) CAPSULES [Concomitant]

REACTIONS (1)
  - HEPATIC ENZYME INCREASED [None]
